FAERS Safety Report 4618325-3 (Version None)
Quarter: 2005Q2

REPORT INFORMATION
  Report Type: 
  Country: None (occurrence: None)
  Receive Date: 20050310
  Receipt Date: 20041008
  Transmission Date: 20051028
  Serious: No
  Sender: FDA-Public Use
  Company Number: 04H-163-0276804-00

PATIENT
  Age: 56 Year
  Sex: Female
  Weight: 71 kg

DRUGS (2)
  1. MIDAZOLAM HYDROCHLORIDE [Suspect]
     Indication: SEDATION
     Dosage: TOTAL DAILY DOSE 5 MG, FREQUENCY X3
     Dates: start: 20041008, end: 20041008
  2. FENTANYL [Concomitant]

REACTIONS (2)
  - DYSPNOEA [None]
  - LOSS OF CONSCIOUSNESS [None]
